FAERS Safety Report 6868854-7 (Version None)
Quarter: 2010Q3

REPORT INFORMATION
  Report Type: 
  Country: None (occurrence: None)
  Receive Date: 20100722
  Receipt Date: 20080619
  Transmission Date: 20110219
  Serious: No
  Sender: FDA-Public Use
  Company Number: US-PFIZER INC-2008052503

PATIENT
  Sex: Female
  Weight: 63.5 kg

DRUGS (5)
  1. CHANTIX [Suspect]
     Indication: SMOKING CESSATION THERAPY
     Dates: start: 20080601
  2. COFFEE [Suspect]
  3. WARFARIN SODIUM [Concomitant]
  4. EXTRA STRENGTH TYLENOL [Concomitant]
  5. ADVIL LIQUI-GELS [Concomitant]

REACTIONS (2)
  - DRUG DOSE OMISSION [None]
  - HEADACHE [None]
